FAERS Safety Report 16684144 (Version 1)
Quarter: 2019Q3

REPORT INFORMATION
  Report Type: Spontaneous
  Country: JP (occurrence: JP)
  Receive Date: 20190808
  Receipt Date: 20190808
  Transmission Date: 20191004
  Serious: Yes (Death, Other)
  Sender: FDA-Public Use
  Company Number: JP-MYLANLABS-2019M1072532

PATIENT
  Age: 59 Year
  Sex: Female
  Weight: 34 kg

DRUGS (11)
  1. DAIKENCHUTO [Concomitant]
     Active Substance: HERBALS
     Indication: PRODUCT USED FOR UNKNOWN INDICATION
     Dosage: 2.5 GRAM, TID BEFORE EACH MEAL
     Route: 048
  2. VANCOMYCIN [Suspect]
     Active Substance: VANCOMYCIN
     Indication: SEPTIC SHOCK
     Dosage: UNK
     Route: 065
     Dates: start: 20190704, end: 20190705
  3. PACLITAXEL. [Suspect]
     Active Substance: PACLITAXEL
     Indication: UTERINE CANCER
     Dosage: UNK
     Route: 041
     Dates: start: 20190625, end: 20190625
  4. DIFENIDOL HYDROCHLORIDE [Concomitant]
     Active Substance: DIPHENIDOL HYDROCHLORIDE
     Indication: PRODUCT USED FOR UNKNOWN INDICATION
     Dosage: 25 MILLIGRAM, TID AFTER EACH MEAL
     Route: 048
  5. LOXOPROFEN [Concomitant]
     Active Substance: LOXOPROFEN
     Indication: PRODUCT USED FOR UNKNOWN INDICATION
     Dosage: 60 MILLIGRAM, PRN
     Route: 048
     Dates: start: 20190627
  6. CARBOCISTEINE [Concomitant]
     Active Substance: CARBOCYSTEINE
     Indication: PRODUCT USED FOR UNKNOWN INDICATION
     Dosage: 500 MILLIGRAM, TID AFTER EACH MEAL
     Route: 048
  7. LYRICA [Concomitant]
     Active Substance: PREGABALIN
     Indication: PRODUCT USED FOR UNKNOWN INDICATION
     Dosage: 25 MILLIGRAM, BID, AFTER EACH BREAKFAST AND DINNER
     Route: 048
     Dates: start: 20190702
  8. UNASYN S [Concomitant]
     Active Substance: AMPICILLIN SODIUM\SULBACTAM SODIUM
     Indication: PRODUCT USED FOR UNKNOWN INDICATION
     Dosage: 1.5 GRAM, TID
     Route: 041
     Dates: start: 20190701
  9. CARBOPLATIN INJ. 50MG ^NK^ [Suspect]
     Active Substance: CARBOPLATIN
     Indication: UTERINE CANCER
     Dosage: 779MG (AUC6)
     Route: 041
     Dates: start: 20190625, end: 20190625
  10. NEUTROGIN [Concomitant]
     Active Substance: LENOGRASTIM
     Indication: PRODUCT USED FOR UNKNOWN INDICATION
     Dosage: 100 MICROGRAM, QD
     Route: 058
     Dates: start: 20190702
  11. TAKECAB [Concomitant]
     Active Substance: VONOPRAZAN FUMURATE
     Indication: PRODUCT USED FOR UNKNOWN INDICATION
     Dosage: 10 MILLIGRAM, QD AFTER BREAKFAST
     Route: 048
     Dates: start: 20190628

REACTIONS (8)
  - Renal impairment [Unknown]
  - Pneumonia aspiration [Unknown]
  - Septic shock [Fatal]
  - Cellulitis [Unknown]
  - Administration site pruritus [Unknown]
  - Circulatory collapse [Unknown]
  - Bone marrow failure [Fatal]
  - Disseminated intravascular coagulation [Unknown]

NARRATIVE: CASE EVENT DATE: 20190626
